FAERS Safety Report 19192046 (Version 3)
Quarter: 2021Q2

REPORT INFORMATION
  Report Type: Report from Study
  Country: CN (occurrence: CN)
  Receive Date: 20210428
  Receipt Date: 20210518
  Transmission Date: 20210717
  Serious: Yes (Hospitalization, Other)
  Sender: FDA-Public Use
  Company Number: CN-TAKEDA-2021TUS026754

PATIENT
  Age: 36 Year
  Sex: Male

DRUGS (3)
  1. ADVATE [Suspect]
     Active Substance: ANTIHEMOPHILIC FACTOR, HUMAN RECOMBINANT
     Indication: HAEMOPHILIA
     Dosage: 1000 INTERNATIONAL UNIT/3 DAY
     Route: 050
     Dates: start: 2020
  2. ADVATE [Suspect]
     Active Substance: ANTIHEMOPHILIC FACTOR, HUMAN RECOMBINANT
     Indication: HAEMOPHILIA
     Dosage: 1000 INTERNATIONAL UNIT/3 DAY
     Route: 050
     Dates: start: 2020
  3. ADVATE [Suspect]
     Active Substance: ANTIHEMOPHILIC FACTOR, HUMAN RECOMBINANT
     Indication: HAEMOPHILIA
     Dosage: 1000 INTERNATIONAL UNIT/3 DAY
     Route: 050
     Dates: start: 2020

REACTIONS (2)
  - Wound haemorrhage [Unknown]
  - Impaired healing [Unknown]

NARRATIVE: CASE EVENT DATE: 202102
